FAERS Safety Report 6785493-7 (Version None)
Quarter: 2010Q2

REPORT INFORMATION
  Report Type: 
  Country: None (occurrence: None)
  Receive Date: 20100623
  Receipt Date: 20100610
  Transmission Date: 20101027
  Serious: Yes (Death, Hospitalization)
  Sender: FDA-Public Use
  Company Number: BR-RANBAXY-2010R5-34505

PATIENT

DRUGS (1)
  1. CEPHALEXIN [Suspect]
     Indication: DRUG USE FOR UNKNOWN INDICATION
     Dosage: 500 MG, QID
     Route: 064

REACTIONS (3)
  - LIVER DISORDER [None]
  - PALLOR [None]
  - SWELLING [None]
